FAERS Safety Report 5724997-2 (Version None)
Quarter: 2008Q2

REPORT INFORMATION
  Report Type: 
  Country: None (occurrence: None)
  Receive Date: 20080430
  Receipt Date: 20080430
  Transmission Date: 20081010
  Serious: Yes (Other)
  Sender: FDA-Public Use
  Company Number: None

PATIENT
  Age: 5 Year
  Sex: Female
  Weight: 29.4838 kg

DRUGS (2)
  1. SINGULAIR [Suspect]
     Indication: ASTHMA
     Dates: start: 20050520, end: 20080318
  2. SINGULAIR [Suspect]
     Indication: HYPERSENSITIVITY
     Dates: start: 20050520, end: 20080318

REACTIONS (6)
  - ABNORMAL BEHAVIOUR [None]
  - CRYING [None]
  - IRRITABILITY [None]
  - MOOD ALTERED [None]
  - MOOD SWINGS [None]
  - SUICIDAL IDEATION [None]
